FAERS Safety Report 23689679 (Version 4)
Quarter: 2024Q2

REPORT INFORMATION
  Report Type: Report from Study
  Country: AU (occurrence: AU)
  Receive Date: 20240331
  Receipt Date: 20240425
  Transmission Date: 20240716
  Serious: Yes (Other)
  Sender: FDA-Public Use
  Company Number: AU-Merck Healthcare KGaA-2024016602

PATIENT
  Age: 53 Year
  Sex: Female

DRUGS (1)
  1. MAVENCLAD [Suspect]
     Active Substance: CLADRIBINE
     Indication: Multiple sclerosis
     Dosage: THERAPY: UNSPECIFIED NUMBER OF ROUNDS
     Route: 048

REACTIONS (8)
  - Sarcoma [Unknown]
  - Pyrexia [Unknown]
  - Malaise [Unknown]
  - Hyperhidrosis [Unknown]
  - Hypersomnia [Unknown]
  - Cyst [Unknown]
  - Inflammation [Unknown]
  - Neutropenia [Unknown]
